FAERS Safety Report 9757521 (Version 1)
Quarter: 2013Q4

REPORT INFORMATION
  Report Type: Report from Study
  Country: US (occurrence: US)
  Receive Date: 20131216
  Receipt Date: 20131216
  Transmission Date: 20140711
  Serious: Yes (Death)
  Sender: FDA-Public Use
  Company Number: US-ROCHE-1320141

PATIENT
  Age: 56 Year
  Sex: Male
  Weight: 71.73 kg

DRUGS (4)
  1. ZELBORAF [Suspect]
     Indication: METASTATIC MALIGNANT MELANOMA
     Dosage: 4 PILLS
     Route: 048
     Dates: end: 20130610
  2. FLEXERIL (UNITED STATES) [Concomitant]
     Indication: MYALGIA
     Route: 048
     Dates: start: 2010, end: 20130617
  3. RANITIDINE [Concomitant]
     Indication: GASTROOESOPHAGEAL REFLUX DISEASE
     Route: 048
     Dates: start: 2010, end: 20130617
  4. GABAPENTIN [Concomitant]
     Indication: NEURALGIA
     Route: 048
     Dates: start: 2010

REACTIONS (2)
  - Death [Fatal]
  - Disease progression [Unknown]
